FAERS Safety Report 23883035 (Version 1)
Quarter: 2024Q2

REPORT INFORMATION
  Report Type: Spontaneous
  Country: US (occurrence: None)
  Receive Date: 20240522
  Receipt Date: 20240522
  Transmission Date: 20240716
  Serious: No
  Sender: FDA-Public Use
  Company Number: 2024A117226

PATIENT

DRUGS (2)
  1. FARXIGA [Suspect]
     Active Substance: DAPAGLIFLOZIN PROPANEDIOL
     Dosage: UNKNOWN
     Route: 048
  2. METOPROLOL [Suspect]
     Active Substance: METOPROLOL
     Dosage: UNKNOWN UNKNOWN

REACTIONS (7)
  - Viral infection [Unknown]
  - Palpitations [Unknown]
  - Ventricular extrasystoles [Unknown]
  - Fatigue [Unknown]
  - Ejection fraction abnormal [Unknown]
  - Illness [Unknown]
  - Intentional product misuse [Unknown]
